FAERS Safety Report 23453026 (Version 3)
Quarter: 2024Q1

REPORT INFORMATION
  Report Type: Report from Study
  Country: US (occurrence: US)
  Receive Date: 20240129
  Receipt Date: 20240314
  Transmission Date: 20240410
  Serious: Yes (Hospitalization, Other)
  Sender: FDA-Public Use
  Company Number: US-PFIZER INC-202300299894

PATIENT
  Age: 80 Year
  Sex: Female

DRUGS (11)
  1. IBRANCE [Suspect]
     Active Substance: PALBOCICLIB
     Indication: Breast cancer stage IV
     Dosage: 125 MG
  2. IBRANCE [Suspect]
     Active Substance: PALBOCICLIB
     Dosage: TAKE 100 MG BY MOUTH ONCE DAILY FOR 3 WEEKS THEN 1 WEEK OFF
     Route: 048
  3. IBRANCE [Suspect]
     Active Substance: PALBOCICLIB
     Dosage: TAKE 1 TABLET BY MOUTH ONCE A DAY FOR 3 WEEKS THEN 1 WEEK OFF
     Route: 048
  4. CITALOPRAM HYDROBROMIDE [Concomitant]
     Active Substance: CITALOPRAM HYDROBROMIDE
     Dosage: UNK
  5. LIBRAX [Concomitant]
     Active Substance: CHLORDIAZEPOXIDE HYDROCHLORIDE\CLIDINIUM BROMIDE
     Dosage: 5-2.5MG
  6. MELATONIN [Concomitant]
     Active Substance: MELATONIN
     Dosage: UNK, POW
  7. ONDANSETRON [Concomitant]
     Active Substance: ONDANSETRON
     Dosage: 8 MG TBD
  8. COBAMAMIDE [Concomitant]
     Active Substance: COBAMAMIDE
     Dosage: 1000 UG TBC
  9. VITAMIN D3 [Concomitant]
     Active Substance: CHOLECALCIFEROL
     Dosage: UNK, POW
  10. OMEPRAZOLE [Concomitant]
     Active Substance: OMEPRAZOLE
     Dosage: 40 MG, CPD
  11. LETROZOLE [Concomitant]
     Active Substance: LETROZOLE
     Dosage: UNK

REACTIONS (16)
  - Rotavirus infection [Unknown]
  - Diarrhoea [Unknown]
  - Parkinson^s disease [Unknown]
  - Vomiting [Unknown]
  - Decreased appetite [Unknown]
  - Depression [Unknown]
  - Nausea [Unknown]
  - Speech disorder [Unknown]
  - Dysphonia [Unknown]
  - Alopecia [Unknown]
  - Mental disorder [Unknown]
  - Asthenia [Unknown]
  - Illness [Recovering/Resolving]
  - Hypersomnia [Unknown]
  - Somnolence [Unknown]
  - Psychiatric symptom [Unknown]
